FAERS Safety Report 18724755 (Version 2)
Quarter: 2021Q1

REPORT INFORMATION
  Report Type: Report from Study
  Country: US (occurrence: US)
  Receive Date: 20210111
  Receipt Date: 20210213
  Transmission Date: 20210419
  Serious: Yes (Death)
  Sender: FDA-Public Use
  Company Number: US-AMGEN-USACT2021002225

PATIENT
  Age: 86 Year
  Sex: Male

DRUGS (1)
  1. IPILIMUMAB [Suspect]
     Active Substance: IPILIMUMAB
     Indication: MALIGNANT MELANOMA
     Dosage: 325 MILLIGRAM
     Route: 042
     Dates: start: 20131212, end: 20140206

REACTIONS (1)
  - Death [Fatal]

NARRATIVE: CASE EVENT DATE: 20201211
